FAERS Safety Report 4707377-8 (Version None)
Quarter: 2005Q3

REPORT INFORMATION
  Report Type: 
  Country: None (occurrence: None)
  Receive Date: 20050706
  Receipt Date: 20030512
  Transmission Date: 20060218
  Serious: Yes (Hospitalization)
  Sender: FDA-Public Use
  Company Number: FR-SANOFI-SYNTHELABO-A02200301206

PATIENT
  Sex: Female
  Weight: 47 kg

DRUGS (5)
  1. ELOXATIN [Suspect]
     Indication: OVARIAN CANCER METASTATIC
     Route: 042
     Dates: start: 20030423, end: 20030423
  2. GEMZAR [Concomitant]
     Route: 042
     Dates: start: 20030422, end: 20030422
  3. SOLU-MEDROL [Concomitant]
     Route: 042
     Dates: start: 20030422, end: 20030423
  4. KYTRIL [Concomitant]
     Route: 042
     Dates: start: 20030422, end: 20030423
  5. POLARAMINE [Concomitant]
     Route: 042
     Dates: start: 20030422, end: 20030423

REACTIONS (8)
  - ANURIA [None]
  - BLOOD CREATININE INCREASED [None]
  - BLOOD LACTATE DEHYDROGENASE INCREASED [None]
  - BLOOD POTASSIUM INCREASED [None]
  - DIALYSIS [None]
  - GLOMERULAR VASCULAR DISORDER [None]
  - RENAL FAILURE ACUTE [None]
  - RENAL TUBULAR NECROSIS [None]
